FAERS Safety Report 21651564 (Version 1)
Quarter: 2022Q4

REPORT INFORMATION
  Report Type: Spontaneous
  Country: US (occurrence: None)
  Receive Date: 20221127
  Receipt Date: 20221127
  Transmission Date: 20230113
  Serious: Yes (Hospitalization)
  Sender: FDA-Public Use
  Company Number: None

PATIENT
  Age: 37 Year
  Sex: Male
  Weight: 96.2 kg

DRUGS (6)
  1. FLUOROURACIL [Suspect]
     Active Substance: FLUOROURACIL
     Indication: Rectal adenocarcinoma
     Dosage: OTHER FREQUENCY : Q2WEEKS;?
     Route: 042
     Dates: start: 20220830, end: 20220927
  2. FLUOROURACIL [Suspect]
     Active Substance: FLUOROURACIL
     Indication: Rectal adenocarcinoma
     Dosage: OTHER FREQUENCY : Q2WEEKS;?
     Route: 042
     Dates: start: 20220830, end: 20220927
  3. DEXAMETHASONE [Concomitant]
     Active Substance: DEXAMETHASONE
  4. OXALIPLATIN [Concomitant]
     Active Substance: OXALIPLATIN
  5. PALONOSETRON [Concomitant]
     Active Substance: PALONOSETRON
  6. LORAZEPAM [Concomitant]
     Active Substance: LORAZEPAM

REACTIONS (1)
  - Arteriospasm coronary [None]

NARRATIVE: CASE EVENT DATE: 20220927
